FAERS Safety Report 8503781-0 (Version None)
Quarter: 2012Q3

REPORT INFORMATION
  Report Type: 
  Country: None (occurrence: None)
  Receive Date: 20120711
  Receipt Date: 20120703
  Transmission Date: 20120928
  Serious: Yes (Disabling, Other)
  Sender: FDA-Public Use
  Company Number: US-009507513-1201USA02900

PATIENT

DRUGS (3)
  1. FOSAMAX [Suspect]
     Indication: OSTEOPENIA
     Dosage: 35 MG, QW
     Route: 048
     Dates: start: 20030101, end: 20081101
  2. FOSAMAX [Suspect]
     Route: 048
     Dates: start: 20081121, end: 20091221
  3. FOSAMAX [Suspect]
     Dosage: 70 MG, QW
     Route: 048

REACTIONS (18)
  - BURSITIS [None]
  - TENDONITIS [None]
  - DEPRESSION [None]
  - ANXIETY [None]
  - PAPILLOMA VIRAL INFECTION [None]
  - MUSCLE STRAIN [None]
  - FEMUR FRACTURE [None]
  - LOW TURNOVER OSTEOPATHY [None]
  - ANOGENITAL WARTS [None]
  - FOOT FRACTURE [None]
  - HERPES VIRUS INFECTION [None]
  - TENDON DISORDER [None]
  - RECTAL HAEMORRHAGE [None]
  - TIBIA FRACTURE [None]
  - NEUROMA [None]
  - PAIN IN EXTREMITY [None]
  - QUALITY OF LIFE DECREASED [None]
  - CONSTIPATION [None]
